FAERS Safety Report 6240820-4 (Version None)
Quarter: 2009Q2

REPORT INFORMATION
  Report Type: 
  Country: None (occurrence: None)
  Receive Date: 20090623
  Receipt Date: 20090615
  Transmission Date: 20091009
  Serious: Yes (Hospitalization)
  Sender: FDA-Public Use
  Company Number: US-ELI_LILLY_AND_COMPANY-US200906003457

PATIENT
  Sex: Female

DRUGS (14)
  1. FORTEO [Suspect]
  2. SYNTHROID [Concomitant]
  3. DYAZIDE [Concomitant]
  4. LYRICA [Concomitant]
     Dosage: 50 MG, 2/D
  5. LYRICA [Concomitant]
     Dosage: 75 MG, EACH EVENING
  6. ACIPHEX [Concomitant]
  7. PLAQUENIL [Concomitant]
  8. SOMA [Concomitant]
  9. VITAMIN E [Concomitant]
     Dosage: 400 MG, UNK
  10. VITAMIN B6 [Concomitant]
  11. VITAMIN B-12 [Concomitant]
  12. VITAMIN D [Concomitant]
  13. PERCOCET [Concomitant]
  14. AMBIEN [Concomitant]

REACTIONS (3)
  - ABDOMINAL PAIN UPPER [None]
  - INTENTIONAL DRUG MISUSE [None]
  - SPINAL FRACTURE [None]
